FAERS Safety Report 4823528-9 (Version None)
Quarter: 2005Q4

REPORT INFORMATION
  Report Type: 
  Country: None (occurrence: None)
  Receive Date: 20051107
  Receipt Date: 20051025
  Transmission Date: 20060501
  Serious: Yes (Life-Threatening)
  Sender: FDA-Public Use
  Company Number: CLOF-10127

PATIENT
  Age: 60 Year
  Sex: Male

DRUGS (2)
  1. CLOLAR [Suspect]
     Indication: ACUTE MYELOID LEUKAEMIA
  2. CYTARABINE [Suspect]
     Indication: ACUTE MYELOID LEUKAEMIA
     Dates: start: 20051010, end: 20051016

REACTIONS (9)
  - ATRIAL FIBRILLATION [None]
  - BACTERIAL INFECTION [None]
  - BLOOD CULTURE POSITIVE [None]
  - CARDIO-RESPIRATORY ARREST [None]
  - CONFUSIONAL STATE [None]
  - DISORIENTATION [None]
  - ELECTROMECHANICAL DISSOCIATION [None]
  - FEBRILE NEUTROPENIA [None]
  - HYPOTENSION [None]
